FAERS Safety Report 9236918 (Version 1)
Quarter: 2013Q2

REPORT INFORMATION
  Report Type: Spontaneous
  Country: IL (occurrence: IL)
  Receive Date: 20130417
  Receipt Date: 20130417
  Transmission Date: 20140414
  Serious: Yes (Other)
  Sender: FDA-Public Use
  Company Number: IL-AMGEN-ISRSP2013024600

PATIENT
  Age: 53 Year
  Sex: Female

DRUGS (2)
  1. ENBREL [Suspect]
     Indication: RHEUMATOID ARTHRITIS
     Dosage: 50 MG, UNK
  2. COLCHICINE [Concomitant]
     Dosage: UNK

REACTIONS (5)
  - Erythema [Unknown]
  - Abscess [Unknown]
  - Emotional distress [Unknown]
  - Condition aggravated [Unknown]
  - Injection site reaction [Unknown]
